FAERS Safety Report 13136465 (Version 2)
Quarter: 2017Q1

REPORT INFORMATION
  Report Type: Spontaneous
  Country: HR (occurrence: HR)
  Receive Date: 20170122
  Receipt Date: 20170220
  Transmission Date: 20170428
  Serious: Yes (Hospitalization, Other)
  Sender: FDA-Public Use
  Company Number: PHHY2017HR004380

PATIENT
  Age: 58 Year
  Sex: Male
  Weight: 106 kg

DRUGS (9)
  1. DECORTIN [Concomitant]
     Active Substance: PREDNISONE
     Indication: PRODUCT USED FOR UNKNOWN INDICATION
     Dosage: 10 MG, UNK
     Route: 065
  2. COSENTYX [Suspect]
     Active Substance: SECUKINUMAB
     Indication: PSORIATIC ARTHROPATHY
     Dosage: 300 MG, QMO
     Route: 058
     Dates: start: 20161130
  3. CONCOR [Concomitant]
     Active Substance: BISOPROLOL FUMARATE
     Indication: PRODUCT USED FOR UNKNOWN INDICATION
     Dosage: 5 MG
     Route: 065
  4. COSENTYX [Suspect]
     Active Substance: SECUKINUMAB
     Dosage: 300 MG, QMO
     Route: 058
     Dates: start: 20170125
  5. VOLTAREN R [Concomitant]
     Indication: PRODUCT USED FOR UNKNOWN INDICATION
     Dosage: PRN
     Route: 065
  6. CONTROLOC [Concomitant]
     Active Substance: PANTOPRAZOLE SODIUM
     Indication: PRODUCT USED FOR UNKNOWN INDICATION
     Dosage: 40 MG, QD
     Route: 065
  7. COSENTYX [Suspect]
     Active Substance: SECUKINUMAB
     Dosage: 300 MG, QMO
     Route: 058
     Dates: start: 20161221
  8. MTX [Concomitant]
     Active Substance: METHOTREXATE SODIUM
     Indication: PRODUCT USED FOR UNKNOWN INDICATION
     Dosage: 20 MG, QW
     Route: 065
  9. CAZAPROL [Concomitant]
     Indication: PRODUCT USED FOR UNKNOWN INDICATION
     Dosage: 5 MG
     Route: 065

REACTIONS (19)
  - Oesophageal candidiasis [Recovering/Resolving]
  - Influenza like illness [Unknown]
  - Thrombocytopenia [Recovered/Resolved]
  - Cholelithiasis [Unknown]
  - White blood cell count decreased [Recovered/Resolved]
  - Nephrolithiasis [Unknown]
  - Upper respiratory tract infection [Recovered/Resolved]
  - Gastrooesophageal reflux disease [Unknown]
  - Malaise [Unknown]
  - Rhinorrhoea [Unknown]
  - Sinusitis [Unknown]
  - C-reactive protein increased [Recovering/Resolving]
  - Nasopharyngitis [Unknown]
  - Pyrexia [Recovered/Resolved]
  - Splenomegaly [Unknown]
  - Transaminases increased [Recovering/Resolving]
  - Cough [Unknown]
  - Cytomegalovirus test positive [Unknown]
  - Gamma-glutamyltransferase increased [Recovering/Resolving]

NARRATIVE: CASE EVENT DATE: 20161230
